FAERS Safety Report 12296341 (Version 3)
Quarter: 2016Q2

REPORT INFORMATION
  Report Type: Report from Study
  Country: US (occurrence: US)
  Receive Date: 20160422
  Receipt Date: 20160526
  Transmission Date: 20160815
  Serious: Yes (Other)
  Sender: FDA-Public Use
  Company Number: ADR-2014-01683

PATIENT
  Age: 61 Year
  Sex: Male

DRUGS (36)
  1. LIORESAL [Suspect]
     Active Substance: BACLOFEN
     Dosage: 234.7MCG/DAY
     Route: 037
     Dates: start: 20140916, end: 20140918
  2. NORVASC [Concomitant]
     Active Substance: AMLODIPINE BESYLATE
     Indication: HYPERTENSION
     Dosage: 5MG ONCE PER DAY
     Route: 048
     Dates: start: 20050411
  3. DIOVAN [Concomitant]
     Active Substance: VALSARTAN
     Indication: HYPERTENSION
     Dosage: 160MG ONCE PER DAY
     Route: 048
     Dates: start: 20050411
  4. FOLTX [Concomitant]
     Active Substance: CYANOCOBALAMIN CO-57\FOLIC ACID\PYRIDOXINE HYDROCHLORIDE
     Indication: CEREBROVASCULAR ACCIDENT
     Dosage: 1 TAB ONCE PER DAY
     Route: 048
     Dates: start: 20050411
  5. LIORESAL [Suspect]
     Active Substance: BACLOFEN
     Dosage: 121.0MCG/DAY
     Route: 037
     Dates: start: 20140821, end: 20140826
  6. LIORESAL [Suspect]
     Active Substance: BACLOFEN
     Dosage: 133.1MCG/DAY
     Route: 037
     Dates: start: 20140826, end: 20140828
  7. LIORESAL [Suspect]
     Active Substance: BACLOFEN
     Dosage: 284.2MCG/DAY
     Route: 037
     Dates: start: 20140930, end: 20141021
  8. METFORMIN HCL [Concomitant]
     Active Substance: METFORMIN HYDROCHLORIDE
     Indication: DIABETES MELLITUS
     Dosage: 500MG ONCE PER DAY
     Route: 048
     Dates: start: 20060101
  9. CRESTOR [Concomitant]
     Active Substance: ROSUVASTATIN CALCIUM
     Indication: HYPERCHOLESTEROLAEMIA
     Dosage: 5MG ONCE PER DAY
     Route: 048
     Dates: start: 20050411
  10. BACLOFEN. [Concomitant]
     Active Substance: BACLOFEN
     Indication: MUSCLE SPASTICITY
     Dosage: 10MG ONCE PER DAY
     Route: 048
     Dates: start: 20140826, end: 20140908
  11. TYLENOL [Concomitant]
     Active Substance: ACETAMINOPHEN
     Indication: HEADACHE
     Dosage: 1000MG AS NEEDED
     Route: 048
     Dates: start: 20140810, end: 20140811
  12. BABY ASPIRIN [Concomitant]
     Active Substance: ASPIRIN
     Indication: CARDIOVASCULAR EVENT PROPHYLAXIS
     Dosage: 81MG ONCE PER DAY
     Route: 048
     Dates: start: 20141007
  13. LIORESAL [Suspect]
     Active Substance: BACLOFEN
     Dosage: 213.6MCG/DAY
     Route: 037
     Dates: start: 20140911, end: 20140916
  14. CENTRUM SILVER [Concomitant]
     Active Substance: MINERALS\VITAMINS
     Dosage: 1 TAB ONCE PER DAY
     Route: 048
     Dates: start: 20050411
  15. LIORESAL [Suspect]
     Active Substance: BACLOFEN
     Dosage: 100MCG/DAY
     Route: 037
     Dates: start: 20140806, end: 20140819
  16. AMLODIPINE BESYLATE. [Concomitant]
     Active Substance: AMLODIPINE BESYLATE
     Indication: HYPERTENSION
     Dosage: 5MG ONCE PER DAY
     Route: 048
     Dates: start: 20050411
  17. MORPHINE [Concomitant]
     Active Substance: MORPHINE
     Indication: PROCEDURAL PAIN
     Dosage: 2 (OTHER GRAM) ONCE PER DAY
     Route: 042
     Dates: start: 20140806, end: 20140806
  18. OXYCODONE [Concomitant]
     Active Substance: OXYCODONE
     Indication: PROCEDURAL PAIN
     Dosage: 5MG AS NEEDED
     Route: 048
     Dates: start: 20140807, end: 20140807
  19. LIORESAL [Suspect]
     Active Substance: BACLOFEN
     Dosage: 160.8MCG/DAY
     Route: 037
     Dates: start: 20140902, end: 20140904
  20. LIORESAL [Suspect]
     Active Substance: BACLOFEN
     Dosage: 258.2MCG/DAY
     Route: 037
     Dates: start: 20140918, end: 20140923
  21. LIORESAL [Suspect]
     Active Substance: BACLOFEN
     Dosage: 255.3MCG/DAY
     Route: 037
     Dates: start: 20141021
  22. PIOGLITAZONE HCL [Concomitant]
     Active Substance: PIOGLITAZONE
     Indication: DIABETES MELLITUS
     Dosage: 30MG ONCE PER DAY
     Route: 048
     Dates: start: 20060101
  23. ESCITALOPRAM OXALATE. [Concomitant]
     Active Substance: ESCITALOPRAM OXALATE
     Indication: DEPRESSION
     Dosage: 20MG ONCE PER DAY
     Route: 048
     Dates: start: 20050411
  24. SENNA S [Concomitant]
     Active Substance: DOCUSATE SODIUM\SENNA LEAF
     Indication: CONSTIPATION
     Dosage: 1 TAB ONCE PER DAY
     Route: 048
     Dates: start: 20050411
  25. LIORESAL [Suspect]
     Active Substance: BACLOFEN
     Dosage: 176.7MCG/DAY
     Route: 037
     Dates: start: 20140904, end: 20140909
  26. FISH OIL [Concomitant]
     Active Substance: FISH OIL
     Dosage: 300MG TWICE PER DAY
     Route: 048
     Dates: start: 20070101
  27. SENSI-CARE [Concomitant]
     Indication: DECUBITUS ULCER
     Dosage: 1 (OTHER APPLICATION) AS NEEDED
     Route: 061
     Dates: start: 20140820, end: 20140821
  28. LIORESAL [Suspect]
     Active Substance: BACLOFEN
     Dosage: 312.9MCG/DAY
     Route: 037
     Dates: start: 20140925, end: 20140930
  29. ACTOS [Concomitant]
     Active Substance: PIOGLITAZONE HYDROCHLORIDE
     Indication: DIABETES MELLITUS
     Dosage: 15MG ONCE PER DAY
     Route: 048
     Dates: start: 20070101
  30. FOLBEE [Concomitant]
     Active Substance: CYANOCOBALAMIN\FOLIC ACID\PYRIDOXINE HYDROCHLORIDE
     Dosage: 1 TAB ONCE PER DAY
     Route: 048
     Dates: start: 20050411
  31. TOPROL XL [Concomitant]
     Active Substance: METOPROLOL SUCCINATE
     Indication: TACHYCARDIA
     Dosage: 25MG ONCE PER DAY
     Route: 048
     Dates: start: 20141007
  32. LIORESAL [Suspect]
     Active Substance: BACLOFEN
     Dosage: 146.1MCG/DAY
     Route: 037
     Dates: start: 20140828, end: 20140902
  33. AGGRENOX [Concomitant]
     Active Substance: ASPIRIN\DIPYRIDAMOLE
     Indication: CEREBROVASCULAR ACCIDENT
     Dosage: 1 TAB ONCE PER DAY
     Route: 048
     Dates: start: 20050411
  34. LIORESAL [Suspect]
     Active Substance: BACLOFEN
     Dosage: 110.1MCG/DAY
     Route: 037
     Dates: start: 20140819, end: 20140821
  35. LIORESAL [Suspect]
     Active Substance: BACLOFEN
     Dosage: 194.4MCG/DAY
     Route: 037
     Dates: start: 20140909, end: 20140911
  36. LIORESAL [Suspect]
     Active Substance: BACLOFEN
     Dosage: 284.2MCG/DAY
     Route: 037
     Dates: start: 20140923, end: 20140925

REACTIONS (15)
  - Supraventricular tachycardia [Recovered/Resolved]
  - Dyspnoea [Recovered/Resolved]
  - Myalgia [Recovered/Resolved]
  - Headache [Recovered/Resolved]
  - Decubitus ulcer [Recovered/Resolved]
  - Myoclonus [Recovered/Resolved]
  - Diastolic dysfunction [Recovered/Resolved]
  - Hypotonia [Recovered/Resolved]
  - Procedural pain [Recovered/Resolved]
  - Pain [Recovered/Resolved]
  - Peripheral swelling [Recovered/Resolved]
  - Muscle spasticity [Recovered/Resolved]
  - Cardiovascular event prophylaxis [Recovered/Resolved]
  - Mitral valve stenosis [Recovered/Resolved]
  - Incision site pain [Recovered/Resolved]

NARRATIVE: CASE EVENT DATE: 2014
